FAERS Safety Report 25450386 (Version 1)
Quarter: 2025Q2

REPORT INFORMATION
  Report Type: Spontaneous
  Country: CN (occurrence: CN)
  Receive Date: 20250618
  Receipt Date: 20250618
  Transmission Date: 20250717
  Serious: Yes (Other)
  Sender: BAXTER
  Company Number: None

PATIENT
  Age: 2 Year
  Sex: Female

DRUGS (4)
  1. CYCLOPHOSPHAMIDE [Suspect]
     Active Substance: CYCLOPHOSPHAMIDE
     Indication: Neuroblastoma
     Dosage: 0.64 G, QD
     Route: 041
     Dates: start: 20250515, end: 20250516
  2. SODIUM ARSENITE [Suspect]
     Active Substance: SODIUM ARSENITE
     Indication: Neuroblastoma
     Dosage: 1.8 MG, QD
     Route: 041
     Dates: start: 20250513, end: 20250522
  3. DAUNORUBICIN HYDROCHLORIDE [Suspect]
     Active Substance: DAUNORUBICIN HYDROCHLORIDE
     Indication: Neuroblastoma
     Dosage: 13.4 MG, QD
     Route: 041
     Dates: start: 20250515, end: 20250517
  4. VINCRISTINE SULFATE [Suspect]
     Active Substance: VINCRISTINE SULFATE
     Indication: Neuroblastoma
     Dosage: 0.36 MG, QD
     Route: 041
     Dates: start: 20250515, end: 20250517

REACTIONS (4)
  - Enterococcal infection [Recovering/Resolving]
  - Pyrexia [Unknown]
  - Myelosuppression [Recovering/Resolving]
  - White blood cell count decreased [Unknown]

NARRATIVE: CASE EVENT DATE: 20250515
